FAERS Safety Report 8231023-2 (Version None)
Quarter: 2012Q1

REPORT INFORMATION
  Report Type: 
  Country: None (occurrence: None)
  Receive Date: 20120323
  Receipt Date: 20120315
  Transmission Date: 20120608
  Serious: Yes (Other)
  Sender: FDA-Public Use
  Company Number: GB-PFIZER INC-2012069289

PATIENT
  Age: 72 Year
  Sex: Male

DRUGS (6)
  1. LANSOPRAZOLE [Concomitant]
     Dosage: 30 MG, 1X/DAY
  2. TPN [Suspect]
  3. ZITHROMAX [Suspect]
     Dosage: 250 MG, 1X/DAY
  4. PREDNISOLONE [Concomitant]
     Dosage: 10 ML, 1X/DAY
  5. CALCITE [Concomitant]
     Dosage: 1 DF, 3X/DAY
  6. ACYCLOVIR [Concomitant]
     Dosage: THREE TIMES DAILY

REACTIONS (4)
  - HEPATIC ENZYME INCREASED [None]
  - STEM CELL TRANSPLANT [None]
  - MULTIPLE MYELOMA [None]
  - LOWER RESPIRATORY TRACT INFECTION [None]
